FAERS Safety Report 23072563 (Version 2)
Quarter: 2023Q4

REPORT INFORMATION
  Report Type: Spontaneous
  Country: US (occurrence: US)
  Receive Date: 20231017
  Receipt Date: 20231108
  Transmission Date: 20240109
  Serious: No
  Sender: FDA-Public Use
  Company Number: US-drreddys-SPO/USA/23/0178054

PATIENT
  Age: 84 Year
  Sex: Female

DRUGS (1)
  1. CLOZAPINE [Suspect]
     Active Substance: CLOZAPINE
     Indication: Product used for unknown indication

REACTIONS (5)
  - Paracusis [Unknown]
  - Urinary tract infection [Unknown]
  - Constipation [Unknown]
  - Illness [Unknown]
  - Asthenia [Unknown]
